FAERS Safety Report 21816686 (Version 1)
Quarter: 2023Q1

REPORT INFORMATION
  Report Type: Spontaneous
  Country: IN (occurrence: IN)
  Receive Date: 20230104
  Receipt Date: 20230104
  Transmission Date: 20230418
  Serious: Yes (Hospitalization, Other)
  Sender: FDA-Public Use
  Company Number: IN-SA-2022SA524731

PATIENT
  Age: 13 Year
  Sex: Female

DRUGS (1)
  1. INSULIN GLARGINE [Suspect]
     Active Substance: INSULIN GLARGINE
     Indication: Diabetes mellitus inadequate control
     Dosage: UNK

REACTIONS (3)
  - Scleroedema [Recovering/Resolving]
  - Hypophagia [Recovering/Resolving]
  - Condition aggravated [Recovering/Resolving]
